FAERS Safety Report 16479861 (Version 2)
Quarter: 2019Q3

REPORT INFORMATION
  Report Type: Report from Study
  Country: US (occurrence: US)
  Receive Date: 20190626
  Receipt Date: 20190708
  Transmission Date: 20191004
  Serious: Yes (Death)
  Sender: FDA-Public Use
  Company Number: US-ACTELION-A-US2019-191804

PATIENT
  Age: 83 Year
  Sex: Female
  Weight: 84.81 kg

DRUGS (15)
  1. TRACLEER [Suspect]
     Active Substance: BOSENTAN
     Indication: PULMONARY ARTERIAL HYPERTENSION
     Dosage: 125 MG, BID
     Route: 048
     Dates: start: 2013
  2. PROAIR HFA [Concomitant]
     Active Substance: ALBUTEROL SULFATE
  3. METOPROLOL. [Concomitant]
     Active Substance: METOPROLOL
     Dosage: 50 UNK
  4. LIPITOR [Concomitant]
     Active Substance: ATORVASTATIN CALCIUM
     Dosage: 20 UNK
  5. XARELTO [Concomitant]
     Active Substance: RIVAROXABAN
     Dosage: 10 UNK
  6. NTG [Concomitant]
     Active Substance: NITROGLYCERIN
     Dosage: 27 UNK
  7. ALDACTONE [Concomitant]
     Active Substance: SPIRONOLACTONE
     Dosage: 25 UNK
  8. LASIX [Concomitant]
     Active Substance: FUROSEMIDE
     Dosage: 40 UNK
  9. PRADAXA [Concomitant]
     Active Substance: DABIGATRAN ETEXILATE MESYLATE
     Dosage: 150 MG
  10. DIOVAN [Concomitant]
     Active Substance: VALSARTAN
     Dosage: 40 UNK
  11. SPIRIVA [Concomitant]
     Active Substance: TIOTROPIUM BROMIDE MONOHYDRATE
  12. HUMALOG [Concomitant]
     Active Substance: INSULIN LISPRO
  13. NEXIUM [Concomitant]
     Active Substance: ESOMEPRAZOLE MAGNESIUM
     Dosage: 40 UNK
  14. ADVAIR HFA [Concomitant]
     Active Substance: FLUTICASONE PROPIONATE\SALMETEROL XINAFOATE
     Dosage: 500/50
  15. METFORMIN [Concomitant]
     Active Substance: METFORMIN HYDROCHLORIDE
     Dosage: 500 UNK

REACTIONS (1)
  - Death [Fatal]

NARRATIVE: CASE EVENT DATE: 20190525
